FAERS Safety Report 10302253 (Version 1)
Quarter: 2014Q3

REPORT INFORMATION
  Report Type: Spontaneous
  Country: US (occurrence: None)
  Receive Date: 20140709
  Receipt Date: 20140709
  Transmission Date: 20150326
  Serious: Yes (Death)
  Sender: FDA-Public Use
  Company Number: HA14-248-AE

PATIENT
  Age: 66 Year
  Sex: Male
  Weight: 95.2 kg

DRUGS (10)
  1. CELECOXIB; IBUPROFEN; PLACEBO [Suspect]
     Active Substance: CELECOXIB\IBUPROFEN\PLACEBO
     Route: 048
     Dates: start: 20121112
  2. FENOFIBRATE. [Concomitant]
     Active Substance: FENOFIBRATE
  3. NAPROXEN. [Suspect]
     Active Substance: NAPROXEN
     Indication: OSTEOARTHRITIS
     Route: 048
     Dates: start: 20121112
  4. NEXIUM [Concomitant]
     Active Substance: ESOMEPRAZOLE MAGNESIUM
  5. ACETYLSALICYLIC ACID (ASPIRIN) [Concomitant]
  6. CARVEDILOL. [Concomitant]
     Active Substance: CARVEDILOL
  7. HYDROCHLOROTHIAZIDE/VALSARTAN (DIOVAN HCT) [Concomitant]
  8. NISOLDIPINE (SULAR) [Concomitant]
  9. NAPROXEN. [Suspect]
     Active Substance: NAPROXEN
     Route: 048
     Dates: start: 20121112
  10. HYDRALAZINE [Concomitant]
     Active Substance: HYDRALAZINE HYDROCHLORIDE

REACTIONS (1)
  - Death [None]

NARRATIVE: CASE EVENT DATE: 20140524
